FAERS Safety Report 10461432 (Version 1)
Quarter: 2014Q3

REPORT INFORMATION
  Report Type: Spontaneous
  Country: NO (occurrence: NO)
  Receive Date: 20140918
  Receipt Date: 20140918
  Transmission Date: 20150326
  Serious: Yes (Death)
  Sender: FDA-Public Use
  Company Number: NO-BAXTER-2014BAX054179

PATIENT
  Age: 72 Year
  Sex: Female

DRUGS (3)
  1. ALBUMIN BAXTER 200 G/L INFUSJONSV?SKE, OPPL?SNING [Suspect]
     Active Substance: ALBUMIN (HUMAN)
     Indication: METABOLIC DISORDER
  2. ALBUMIN BAXTER 200 G/L INFUSJONSV?SKE, OPPL?SNING [Suspect]
     Active Substance: ALBUMIN (HUMAN)
     Indication: GENERALISED OEDEMA
  3. ALBUMIN BAXTER 200 G/L INFUSJONSV?SKE, OPPL?SNING [Suspect]
     Active Substance: ALBUMIN (HUMAN)
     Indication: HYPOALBUMINAEMIA
     Route: 042
     Dates: start: 20140819, end: 20140819

REACTIONS (3)
  - Acute pulmonary oedema [Fatal]
  - Malnutrition [Fatal]
  - Hypervolaemia [Fatal]

NARRATIVE: CASE EVENT DATE: 20140819
